FAERS Safety Report 5028182-1 (Version None)
Quarter: 2006Q2

REPORT INFORMATION
  Report Type: 
  Country: None (occurrence: None)
  Receive Date: 20060613
  Receipt Date: 20060531
  Transmission Date: 20061013
  Serious: Yes (Hospitalization)
  Sender: FDA-Public Use
  Company Number: 2006048597

PATIENT
  Age: 70 Year
  Sex: Female

DRUGS (1)
  1. ZMAX [Suspect]
     Indication: ILL-DEFINED DISORDER

REACTIONS (2)
  - DIARRHOEA [None]
  - RECTAL HAEMORRHAGE [None]
